FAERS Safety Report 15899103 (Version 1)
Quarter: 2019Q1

REPORT INFORMATION
  Report Type: Spontaneous
  Country: US (occurrence: US)
  Receive Date: 20190201
  Receipt Date: 20190201
  Transmission Date: 20190417
  Serious: No
  Sender: FDA-Public Use
  Company Number: US-TEVA-2019-US-999947

PATIENT
  Sex: Male

DRUGS (2)
  1. BUPRENORPHINE SUBLINGUAL TABLETS [Suspect]
     Active Substance: BUPRENORPHINE
     Route: 060
  2. BUPRENORPHINE SUBLINGUAL TABLETS [Suspect]
     Active Substance: BUPRENORPHINE
     Indication: DRUG DEPENDENCE
     Route: 060
     Dates: start: 2018

REACTIONS (1)
  - Nightmare [Recovered/Resolved]
